FAERS Safety Report 15410548 (Version 15)
Quarter: 2019Q4

REPORT INFORMATION
  Report Type: Spontaneous
  Country: CA (occurrence: CA)
  Receive Date: 20180921
  Receipt Date: 20191129
  Transmission Date: 20200122
  Serious: Yes (Hospitalization, Other)
  Sender: FDA-Public Use
  Company Number: CA-CELLTRION INC.-2018CA022434

PATIENT

DRUGS (24)
  1. INFLECTRA [Suspect]
     Active Substance: INFLIXIMAB-DYYB
     Dosage: 10 MG/KG, 0-1-4 WEEKS
     Route: 042
     Dates: start: 20181226
  2. INFLECTRA [Suspect]
     Active Substance: INFLIXIMAB-DYYB
     Dosage: 10 MG/KG, WEEKS 6, THEN EVERY 4 WEEKS
     Route: 042
     Dates: start: 20190529
  3. INFLECTRA [Suspect]
     Active Substance: INFLIXIMAB-DYYB
     Dosage: 10 MG/KG, WEEKS 6, THEN EVERY 4 WEEKS
     Route: 042
     Dates: start: 20190627
  4. EFFEXOR [Concomitant]
     Active Substance: VENLAFAXINE HYDROCHLORIDE
     Dosage: UNK
  5. AZATHIOPRINE. [Concomitant]
     Active Substance: AZATHIOPRINE
     Indication: CROHN^S DISEASE
     Dosage: 125 MG, 1X/DAY
     Route: 048
  6. VALPROIC ACID. [Concomitant]
     Active Substance: VALPROIC ACID
     Dosage: UNK
  7. INFLECTRA [Suspect]
     Active Substance: INFLIXIMAB-DYYB
     Dosage: 10 MG/KG, 27 WEEKS AFTER LAST INFUSION
     Route: 042
     Dates: start: 20190430
  8. PREDNISONE. [Concomitant]
     Active Substance: PREDNISONE
     Dosage: UNK (REPORTED AS 50, BY MOUTH), DAILY
     Route: 048
  9. TYLENOL [Concomitant]
     Active Substance: ACETAMINOPHEN
     Dosage: 650MG
     Route: 048
     Dates: start: 20180925, end: 20180925
  10. INFLECTRA [Suspect]
     Active Substance: INFLIXIMAB-DYYB
     Dosage: 10 MG/KG, 0-1-4 WEEKS
     Route: 042
     Dates: start: 20181106
  11. INFLECTRA [Suspect]
     Active Substance: INFLIXIMAB-DYYB
     Dosage: 10 MG/KG, WEEK 6 AND EVERY 4 WEEKS THEREAFTER
     Route: 042
     Dates: start: 20190306
  12. IRON [Concomitant]
     Active Substance: IRON
     Dosage: UNK
  13. MAGNESIUM [Concomitant]
     Active Substance: MAGNESIUM
     Dosage: UNK
  14. HYDROCORTISONE. [Concomitant]
     Active Substance: HYDROCORTISONE
     Indication: PREMEDICATION
     Dosage: 100 MG, UNK
     Route: 042
     Dates: start: 20190726, end: 20190726
  15. HYDROCORTISONE. [Concomitant]
     Active Substance: HYDROCORTISONE
     Dosage: 100 MG, UNK
     Route: 042
     Dates: start: 20180925, end: 20180925
  16. INFLECTRA [Suspect]
     Active Substance: INFLIXIMAB-DYYB
     Dosage: 600 MG (WEIGHT: 69.5KG, FOR ONE INFUSION), UNK
     Route: 042
     Dates: start: 20181023, end: 20181023
  17. PANTOLOC CONTROL [Concomitant]
     Active Substance: PANTOPRAZOLE SODIUM
     Dosage: UNK, 1X/DAY
  18. DIPHENHYDRAMINE. [Concomitant]
     Active Substance: DIPHENHYDRAMINE
     Indication: PREMEDICATION
     Dosage: 50 MG, UNK
     Route: 042
     Dates: start: 20190726, end: 20190726
  19. INFLECTRA [Suspect]
     Active Substance: INFLIXIMAB-DYYB
     Dosage: 5 MG/KG WEEK 0, 1, 4 THEN Q 4 WEEKS
     Route: 042
     Dates: start: 20180906
  20. DIPHENHYDRAMINE. [Concomitant]
     Active Substance: DIPHENHYDRAMINE
     Dosage: 50 MG, UNK
     Route: 042
     Dates: start: 20180925, end: 20180925
  21. INFLECTRA [Suspect]
     Active Substance: INFLIXIMAB-DYYB
     Indication: CROHN^S DISEASE
     Dosage: 5 MG/KG WEEK 0, 1, 4 THEN Q 8 WEEKS
     Route: 042
     Dates: start: 20180828
  22. INFLECTRA [Suspect]
     Active Substance: INFLIXIMAB-DYYB
     Dosage: 5 MG/KG WEEK 0, 1, 4 THEN Q 4 WEEKS
     Route: 042
     Dates: start: 20180925, end: 20180925
  23. INFLECTRA [Suspect]
     Active Substance: INFLIXIMAB-DYYB
     Dosage: 10 MG/KG, WEEKS 6, THEN EVERY 4 WEEKS
     Route: 042
     Dates: start: 20190726
  24. ACETAMINOPHEN. [Concomitant]
     Active Substance: ACETAMINOPHEN
     Indication: PREMEDICATION
     Dosage: 650 MG, UNK
     Route: 048
     Dates: start: 20190726, end: 20190726

REACTIONS (30)
  - Dyspnoea [Recovered/Resolved]
  - Salivary hypersecretion [Recovered/Resolved]
  - Fungal infection [Unknown]
  - Off label use [Unknown]
  - Hyponatraemia [Unknown]
  - Inappropriate schedule of product administration [Unknown]
  - Pneumonia [Unknown]
  - Hypotension [Unknown]
  - Drug ineffective [Not Recovered/Not Resolved]
  - Serum sickness-like reaction [Recovered/Resolved]
  - Hypersensitivity [Unknown]
  - Systemic candida [Recovered/Resolved]
  - Speech disorder [Recovering/Resolving]
  - Poor venous access [Unknown]
  - Nausea [Recovered/Resolved]
  - Aphonia [Unknown]
  - Septic shock [Recovered/Resolved]
  - Panic disorder [Recovered/Resolved]
  - Malaise [Recovered/Resolved]
  - Intestinal obstruction [Unknown]
  - Pulmonary embolism [Unknown]
  - Sepsis [Unknown]
  - Oxygen saturation decreased [Recovered/Resolved]
  - Vomiting [Recovering/Resolving]
  - Condition aggravated [Unknown]
  - Blood pressure fluctuation [Unknown]
  - Heart rate irregular [Recovered/Resolved]
  - Tension [Recovered/Resolved]
  - Incorrect dose administered [Unknown]
  - Body temperature fluctuation [Unknown]

NARRATIVE: CASE EVENT DATE: 20180828
